FAERS Safety Report 25470155 (Version 1)
Quarter: 2025Q2

REPORT INFORMATION
  Report Type: Spontaneous
  Country: FR (occurrence: FR)
  Receive Date: 20250623
  Receipt Date: 20250623
  Transmission Date: 20250717
  Serious: Yes (Hospitalization)
  Sender: JOHNSON AND JOHNSON
  Company Number: None

PATIENT
  Age: 48 Year
  Sex: Male
  Weight: 81 kg

DRUGS (5)
  1. BOSENTAN [Suspect]
     Active Substance: BOSENTAN
     Indication: Systemic scleroderma
     Route: 065
     Dates: start: 20250129, end: 20250604
  2. ATORVASTATIN [Suspect]
     Active Substance: ATORVASTATIN
     Indication: Systemic scleroderma
     Route: 048
     Dates: end: 20250605
  3. AMITRIPTYLINE [Suspect]
     Active Substance: AMITRIPTYLINE
     Indication: Product used for unknown indication
     Route: 048
     Dates: end: 20250605
  4. PANTOPRAZOLE [Suspect]
     Active Substance: PANTOPRAZOLE
     Indication: Gastrooesophageal reflux disease
     Route: 048
     Dates: end: 20250604
  5. ISRADIPINE [Suspect]
     Active Substance: ISRADIPINE
     Indication: Systemic scleroderma
     Route: 048
     Dates: start: 20250129, end: 20250605

REACTIONS (1)
  - Hepatitis [Recovering/Resolving]

NARRATIVE: CASE EVENT DATE: 20250515
